FAERS Safety Report 13332727 (Version 2)
Quarter: 2017Q2

REPORT INFORMATION
  Report Type: Spontaneous
  Country: US (occurrence: US)
  Receive Date: 20170314
  Receipt Date: 20170517
  Transmission Date: 20170830
  Serious: Yes (Other)
  Sender: FDA-Public Use
  Company Number: US-PFIZER INC-2017092589

PATIENT
  Age: 13 Year
  Sex: Female
  Weight: 38 kg

DRUGS (6)
  1. PROBIOTICA [Concomitant]
     Active Substance: PROBIOTICS NOS
     Dosage: UNK, DAILY
     Route: 048
  2. GENOTROPIN MQ [Suspect]
     Active Substance: SOMATROPIN
     Dosage: 1 MG, CYCLIC (5 DAYS A WEEK)
     Dates: start: 201507
  3. NASONEX [Concomitant]
     Active Substance: MOMETASONE FUROATE
     Dosage: UNK
     Route: 045
  4. GENOTROPIN MQ [Suspect]
     Active Substance: SOMATROPIN
     Indication: HORMONE THERAPY
     Dosage: 1.4 MG, 1X/DAY (INJECTION NIGHTLY AT BEDTIME)
     Route: 058
  5. FLONASE [Concomitant]
     Active Substance: FLUTICASONE PROPIONATE
     Dosage: 1 DF, (50 MCG/ACT, EACH NOSTRIL)
     Route: 045
  6. MIRALAX [Concomitant]
     Active Substance: POLYETHYLENE GLYCOL 3350
     Dosage: 17 G, DAILY
     Route: 048

REACTIONS (2)
  - Scoliosis [Unknown]
  - Condition aggravated [Unknown]

NARRATIVE: CASE EVENT DATE: 201607
